FAERS Safety Report 8585516-9 (Version None)
Quarter: 2012Q3

REPORT INFORMATION
  Report Type: 
  Country: None (occurrence: None)
  Receive Date: 20120810
  Receipt Date: 20120807
  Transmission Date: 20120928
  Serious: Yes (Life-Threatening, Hospitalization, Other)
  Sender: FDA-Public Use
  Company Number: IL-B.I. PHARMACEUTICALS,INC./RIDGEFIELD-2012-AP-00590RI

PATIENT
  Age: 80 Year
  Sex: Female

DRUGS (14)
  1. RAMIPRIL [Concomitant]
     Indication: HYPERTENSION
     Dosage: 2.5 MG
  2. BISOPROLOL FUMARATE [Concomitant]
     Indication: ATRIAL FIBRILLATION
     Dosage: 2.5 MG
  3. APIDRA [Concomitant]
     Route: 058
  4. PRADAXA [Suspect]
     Indication: DEEP VEIN THROMBOSIS
  5. LYRICA [Concomitant]
     Dosage: 150 MG
     Route: 048
  6. RAMIPRIL [Concomitant]
     Dosage: 5 MG
     Route: 048
  7. PRADAXA [Suspect]
     Indication: ATRIAL FIBRILLATION
     Route: 048
     Dates: start: 20120508
  8. PRADAXA [Suspect]
     Indication: CEREBROVASCULAR ACCIDENT
  9. FUROSEMIDE [Concomitant]
     Indication: CARDIAC FAILURE
     Dosage: 40 MG
  10. MIXTARD INSULIN 30/70 [Concomitant]
     Indication: DIABETES MELLITUS
     Dosage: 12U/6U
  11. SIMVASTATIN [Concomitant]
     Route: 048
  12. RECITAL [Concomitant]
     Dosage: 20 MG
     Route: 048
  13. NEOBLOC [Concomitant]
     Dosage: 100 MG
     Route: 048
  14. LANTUS [Concomitant]
     Route: 058

REACTIONS (3)
  - CONVULSION [None]
  - RECTAL HAEMORRHAGE [None]
  - HAEMOGLOBIN DECREASED [None]
